FAERS Safety Report 10997973 (Version 1)
Quarter: 2015Q2

REPORT INFORMATION
  Report Type: Spontaneous
  Country: US (occurrence: US)
  Receive Date: 20150408
  Receipt Date: 20150408
  Transmission Date: 20150821
  Serious: No
  Sender: FDA-Public Use
  Company Number: US-BANPHARM-20153377

PATIENT
  Age: 77 Year
  Sex: Female
  Weight: 79.38 kg

DRUGS (4)
  1. LOSARTAN [Concomitant]
     Active Substance: LOSARTAN
  2. ALEVE [Suspect]
     Active Substance: NAPROXEN SODIUM
     Indication: ARTHRITIS
     Dosage: 1-2 DF, ONCE DAILY,
     Route: 048
     Dates: start: 20150110, end: 20150116
  3. LIPTIOR [Concomitant]
  4. ALEVE [Suspect]
     Active Substance: NAPROXEN SODIUM
     Indication: ARTHRITIS
     Dosage: 2 DF, ONCE DAILY,
     Dates: start: 2013

REACTIONS (4)
  - Nausea [Recovered/Resolved]
  - Incorrect drug administration duration [Unknown]
  - Retching [Recovered/Resolved]
  - Medication error [Unknown]

NARRATIVE: CASE EVENT DATE: 2013
